FAERS Safety Report 24991119 (Version 1)
Quarter: 2025Q1

REPORT INFORMATION
  Report Type: Spontaneous
  Country: AR (occurrence: AR)
  Receive Date: 20250220
  Receipt Date: 20250220
  Transmission Date: 20250409
  Serious: Yes (Other)
  Sender: SANDOZ
  Company Number: AR-SANDOZ-SDZ2024AR098178

PATIENT
  Age: 12 Year
  Sex: Male
  Weight: 32 kg

DRUGS (2)
  1. OMNITROPE [Suspect]
     Active Substance: SOMATROPIN
     Indication: Silver-Russell syndrome
     Dosage: 1.6 MG, QD
     Route: 058
     Dates: start: 20240920
  2. TRIPTORELIN ACETATE [Concomitant]
     Active Substance: TRIPTORELIN ACETATE
     Indication: Puberty
     Route: 065

REACTIONS (3)
  - Deafness unilateral [Unknown]
  - Product use in unapproved indication [Unknown]
  - Expired product administered [Unknown]

NARRATIVE: CASE EVENT DATE: 20240920
